FAERS Safety Report 4299162-9 (Version None)
Quarter: 2004Q1

REPORT INFORMATION
  Report Type: 
  Country: None (occurrence: None)
  Receive Date: 20040217
  Receipt Date: 20040204
  Transmission Date: 20041129
  Serious: Yes (Life-Threatening)
  Sender: FDA-Public Use
  Company Number: US-SHR-04-021010

PATIENT
  Age: 15 Month

DRUGS (2)
  1. MAGNEVIST INJECTION (GADOPENTATE DIMEGLUMINE)INJECTION [Suspect]
     Indication: NUCLEAR MAGNETIC RESONANCE IMAGING BRAIN
     Dosage: ^CONVENTIONAL DOSE^, INTRAVENOUS
     Route: 042
     Dates: start: 20040130, end: 20040130
  2. DIPRIVAN [Concomitant]

REACTIONS (2)
  - BLOOD PRESSURE SYSTOLIC INSPIRATORY DECREASED [None]
  - OXYGEN SATURATION DECREASED [None]
